FAERS Safety Report 8536248-4 (Version None)
Quarter: 2012Q3

REPORT INFORMATION
  Report Type: 
  Country: None (occurrence: None)
  Receive Date: 20120725
  Receipt Date: 20120719
  Transmission Date: 20120928
  Serious: Yes (Other)
  Sender: FDA-Public Use
  Company Number: PL-PFIZER INC-2012163615

PATIENT
  Sex: Male

DRUGS (8)
  1. PLAVIX [Concomitant]
     Dosage: UNK
  2. ASPIRIN [Concomitant]
     Dosage: 75 MG, UNK
  3. METOCARD [Concomitant]
     Dosage: UNK
  4. ANESTELOC [Concomitant]
     Indication: PROPHYLAXIS
     Dosage: UNK
  5. CARDURA [Suspect]
     Indication: BENIGN PROSTATIC HYPERPLASIA
     Dosage: 4 MG, 1X/DAY
     Route: 048
     Dates: start: 20111018
  6. SINTROM [Concomitant]
     Dosage: UNK
  7. RAMIPRIL [Concomitant]
     Dosage: UNK
  8. OPACORDEN [Concomitant]
     Dosage: UNK

REACTIONS (1)
  - HAEMATOSPERMIA [None]
